FAERS Safety Report 7720875-8 (Version None)
Quarter: 2011Q3

REPORT INFORMATION
  Report Type: 
  Country: None (occurrence: None)
  Receive Date: 20110831
  Receipt Date: 20110818
  Transmission Date: 20111222
  Serious: Yes (Other)
  Sender: FDA-Public Use
  Company Number: CA-US-EMD SERONO, INC.-7077609

PATIENT
  Sex: Female

DRUGS (4)
  1. TYLENOL-500 [Concomitant]
     Route: 048
  2. VITAMIN D [Concomitant]
     Route: 048
  3. LOVAZA [Concomitant]
     Route: 048
  4. REBIF [Suspect]
     Indication: MULTIPLE SCLEROSIS
     Route: 058
     Dates: start: 20090609

REACTIONS (1)
  - SMEAR CERVIX ABNORMAL [None]
